FAERS Safety Report 7313658-4 (Version None)
Quarter: 2011Q1

REPORT INFORMATION
  Report Type: 
  Country: None (occurrence: None)
  Receive Date: 20110225
  Receipt Date: 20110218
  Transmission Date: 20110831
  Serious: Yes (Hospitalization, Other)
  Sender: FDA-Public Use
  Company Number: VE-PFIZER INC-2011024132

PATIENT
  Age: 56 Year
  Sex: Female

DRUGS (1)
  1. CHAMPIX [Suspect]
     Indication: SMOKING CESSATION THERAPY
     Dosage: 0.5 MG, 1X/DAY
     Route: 048
     Dates: start: 20100901, end: 20100901

REACTIONS (3)
  - DIABETES MELLITUS [None]
  - PULMONARY INFARCTION [None]
  - CHRONIC OBSTRUCTIVE PULMONARY DISEASE [None]
